FAERS Safety Report 15894950 (Version 1)
Quarter: 2019Q1

REPORT INFORMATION
  Report Type: Spontaneous
  Country: US (occurrence: US)
  Receive Date: 20190125
  Receipt Date: 20190125
  Transmission Date: 20190417
  Serious: No
  Sender: FDA-Public Use
  Company Number: None

PATIENT

DRUGS (1)
  1. TRIPTODUR [Suspect]
     Active Substance: TRIPTORELIN
     Indication: PRECOCIOUS PUBERTY
     Dosage: OTHER FREQUENCY:Q 24 WEEKS;?
     Route: 030

REACTIONS (5)
  - Circumstance or information capable of leading to medication error [None]
  - Product complaint [None]
  - Product preparation issue [None]
  - Product formulation issue [None]
  - Device issue [None]
